FAERS Safety Report 9540143 (Version 1)
Quarter: 2013Q2

REPORT INFORMATION
  Report Type: Spontaneous
  Country: US (occurrence: None)
  Receive Date: 20130524
  Receipt Date: 20130524
  Transmission Date: 20140414
  Serious: Yes (Hospitalization, Other)
  Sender: FDA-Public Use
  Company Number: PHEH2013US003690

PATIENT
  Age: 43 Year
  Sex: Female
  Weight: 95.2 kg

DRUGS (4)
  1. GILENYA [Suspect]
     Indication: MULTIPLE SCLEROSIS
     Route: 048
     Dates: start: 20130201
  2. WELLBUTRIN (BUPROPION HYDROCHLORIDE) [Concomitant]
  3. OXYBUTIN (OXYBUTYNIN HYDROCHLORIDE) [Concomitant]
  4. VITAMIN D (ERGOCALCIFEROL) [Concomitant]

REACTIONS (2)
  - Multiple sclerosis relapse [None]
  - Drug ineffective [None]
